FAERS Safety Report 8583002-3 (Version None)
Quarter: 2012Q2

REPORT INFORMATION
  Report Type: 
  Country: None (occurrence: None)
  Receive Date: 20120423
  Receipt Date: 20101129
  Transmission Date: 20120825
  Serious: Yes (Other)
  Sender: FDA-Public Use
  Company Number: PHHY2010US83277

PATIENT
  Sex: Female

DRUGS (6)
  1. SPIRIVA [Concomitant]
  2. FORADIL [Suspect]
     Indication: CHRONIC OBSTRUCTIVE PULMONARY DISEASE
     Dosage: 12 UG, BID, INHALATION
     Route: 055
  3. FORADIL [Suspect]
     Indication: BRONCHOSPASM
     Dosage: 12 UG, BID, INHALATION
     Route: 055
  4. FORADIL [Suspect]
     Indication: EMPHYSEMA
     Dosage: 12 UG, BID, INHALATION
     Route: 055
  5. PREDNI (PREDNISOLONE ACETATE) [Concomitant]
  6. DUONEB [Concomitant]

REACTIONS (3)
  - DEVICE MALFUNCTION [None]
  - INCORRECT DOSE ADMINISTERED [None]
  - BRONCHOSPASM [None]
